FAERS Safety Report 11150122 (Version 1)
Quarter: 2015Q2

REPORT INFORMATION
  Report Type: Spontaneous
  Country: US (occurrence: US)
  Receive Date: 20150529
  Receipt Date: 20150529
  Transmission Date: 20150821
  Serious: Yes (Hospitalization, Other)
  Sender: FDA-Public Use
  Company Number: US-ASTRAZENECA-2015SE51248

PATIENT
  Age: 28394 Day
  Sex: Male

DRUGS (2)
  1. OMEPRAZOLE. [Suspect]
     Active Substance: OMEPRAZOLE
     Indication: DYSPEPSIA
     Route: 048
     Dates: start: 201407, end: 20141230
  2. BUMETANIDE. [Concomitant]
     Active Substance: BUMETANIDE
     Indication: DIURETIC THERAPY
     Route: 048

REACTIONS (8)
  - Ischaemic cardiomyopathy [Not Recovered/Not Resolved]
  - Orthopnoea [Not Recovered/Not Resolved]
  - Arrhythmia [Recovered/Resolved]
  - Device occlusion [Recovered/Resolved]
  - Heart rate abnormal [Recovered/Resolved]
  - Cardiac output decreased [Not Recovered/Not Resolved]
  - Cardiac failure congestive [Unknown]
  - Pulmonary oedema [Recovered/Resolved]

NARRATIVE: CASE EVENT DATE: 20150209
